FAERS Safety Report 10090357 (Version 2)
Quarter: 2014Q2

REPORT INFORMATION
  Report Type: Spontaneous
  Country: US (occurrence: US)
  Receive Date: 20140421
  Receipt Date: 20140602
  Transmission Date: 20141212
  Serious: No
  Sender: FDA-Public Use
  Company Number: US-PFIZER INC-2014107761

PATIENT
  Age: 62 Year
  Sex: Female
  Weight: 88.44 kg

DRUGS (2)
  1. ADVIL [Suspect]
     Indication: ARTHRITIS
     Dosage: 200MG, TWO TIMES A DAY
     Route: 048
     Dates: start: 201403, end: 201404
  2. HYDROCHLOROTHIAZIDE [Concomitant]
     Indication: HYPERTENSION
     Dosage: 25 MG, DAILY

REACTIONS (3)
  - Poor quality drug administered [Unknown]
  - Oral discomfort [Unknown]
  - Product physical issue [Unknown]
